FAERS Safety Report 9479241 (Version 1)
Quarter: 2013Q3

REPORT INFORMATION
  Report Type: Spontaneous
  Country: CA (occurrence: CA)
  Receive Date: 20130827
  Receipt Date: 20130827
  Transmission Date: 20140515
  Serious: Yes (Hospitalization)
  Sender: FDA-Public Use
  Company Number: CA-MYLANLABS-2012S1015125

PATIENT
  Age: 55 Year
  Sex: Female

DRUGS (5)
  1. CEFTRIAXONE [Suspect]
     Indication: MENINGITIS BACTERIAL
  2. VANCOMYCIN [Suspect]
     Indication: MENINGITIS BACTERIAL
  3. CEFTAZIDIME [Suspect]
     Indication: MENINGITIS BACTERIAL
     Route: 065
  4. MEROPENEM [Concomitant]
     Indication: MENINGITIS BACTERIAL
     Route: 065
  5. CIPROFLOXACIN [Concomitant]
     Indication: MENINGITIS BACTERIAL
     Route: 065

REACTIONS (3)
  - Drug reaction with eosinophilia and systemic symptoms [Recovered/Resolved]
  - Disease progression [Recovered/Resolved]
  - Histiocytosis haematophagic [Recovered/Resolved]
